FAERS Safety Report 25136385 (Version 1)
Quarter: 2025Q1

REPORT INFORMATION
  Report Type: Spontaneous
  Country: NP (occurrence: NP)
  Receive Date: 20250328
  Receipt Date: 20250328
  Transmission Date: 20250409
  Serious: Yes (Hospitalization)
  Sender: NOVAST LABORATORIES LTD
  Company Number: NP-NOVAST LABORATORIES INC.-2025NOV000204

PATIENT
  Age: 27 Year
  Sex: Male

DRUGS (4)
  1. PRIMAQUINE [Suspect]
     Active Substance: PRIMAQUINE
     Indication: Plasmodium vivax infection
     Route: 065
  2. CHLOROQUINE [Concomitant]
     Active Substance: CHLOROQUINE
     Indication: Plasmodium vivax infection
     Route: 065
  3. ACETAMINOPHEN [Concomitant]
     Active Substance: ACETAMINOPHEN
     Indication: Product used for unknown indication
     Route: 042
  4. PANTOPRAZOLE [Concomitant]
     Active Substance: PANTOPRAZOLE
     Indication: Product used for unknown indication
     Route: 042

REACTIONS (1)
  - Haemolytic anaemia [Recovering/Resolving]
